FAERS Safety Report 19957643 (Version 1)
Quarter: 2021Q4

REPORT INFORMATION
  Report Type: Spontaneous
  Country: US (occurrence: US)
  Receive Date: 20211014
  Receipt Date: 20211014
  Transmission Date: 20220303
  Serious: Yes (Life-Threatening, Hospitalization, Other)
  Sender: FDA-Public Use
  Company Number: US-BRISTOL-MYERS SQUIBB COMPANY-BMS-2021-106101

PATIENT
  Age: 29 Year
  Sex: Female
  Weight: 107.94 kg

DRUGS (2)
  1. ELIQUIS [Suspect]
     Active Substance: APIXABAN
     Indication: Product used for unknown indication
     Dosage: UNK
     Route: 065
  2. ORENITRAM [Suspect]
     Active Substance: TREPROSTINIL
     Indication: Pulmonary arterial hypertension
     Dosage: UNK
     Route: 065

REACTIONS (6)
  - Hepatic failure [Unknown]
  - Migraine [Unknown]
  - Alopecia [Unknown]
  - Dyspnoea [Unknown]
  - Liver function test increased [Unknown]
  - Nausea [Unknown]

NARRATIVE: CASE EVENT DATE: 20201101
